FAERS Safety Report 9611162 (Version 1)
Quarter: 2013Q4

REPORT INFORMATION
  Report Type: Spontaneous
  Country: GB (occurrence: GB)
  Receive Date: 20131009
  Receipt Date: 20131009
  Transmission Date: 20140711
  Serious: Yes (Other)
  Sender: FDA-Public Use
  Company Number: GB-BAXTER-2013BAX039529

PATIENT
  Age: 46 Year
  Sex: Male

DRUGS (1)
  1. MANNITOL 10%, OPLOSSING VOOR INTRAVENEUZE INFUSIE 100 G/L [Suspect]
     Indication: POLYURIA
     Route: 042

REACTIONS (2)
  - Pulmonary oedema [Recovered/Resolved]
  - Oliguria [Recovered/Resolved]
